FAERS Safety Report 4525326-2 (Version None)
Quarter: 2004Q4

REPORT INFORMATION
  Report Type: 
  Country: None (occurrence: None)
  Receive Date: 20041213
  Receipt Date: 20041207
  Transmission Date: 20050328
  Serious: Yes (Hospitalization, Other)
  Sender: FDA-Public Use
  Company Number: 200419365US

PATIENT
  Sex: Female
  Weight: 79.5 kg

DRUGS (8)
  1. LANTUS [Suspect]
     Indication: DIABETES MELLITUS NON-INSULIN-DEPENDENT
     Dosage: DOSE UNIT: UNITS
     Route: 051
  2. NITRO PATCH [Concomitant]
     Dosage: DOSE: UNK
  3. ZETIA                                   /USA/ [Concomitant]
     Indication: BLOOD CHOLESTEROL INCREASED
     Dosage: DOSE: UNK
  4. DIOVAN [Concomitant]
     Indication: HYPERTENSION
     Dosage: DOSE: UNK
  5. NEXIUM [Concomitant]
     Indication: GASTROOESOPHAGEAL REFLUX DISEASE
  6. HYDROCODONE [Concomitant]
     Indication: PAIN
     Dosage: DOSE: UNKNOWN
  7. POTASSIUM [Concomitant]
     Dosage: DOSE: UNK
  8. TOPROL-XL [Concomitant]
     Indication: HYPERTENSION
     Dosage: DOSE: UNK

REACTIONS (8)
  - BLOOD GLUCOSE INCREASED [None]
  - DIZZINESS [None]
  - HEADACHE [None]
  - HEART RATE INCREASED [None]
  - INSOMNIA [None]
  - IRRITABILITY [None]
  - TRANSIENT ISCHAEMIC ATTACK [None]
  - TREMOR [None]
